FAERS Safety Report 25886536 (Version 1)
Quarter: 2025Q4

REPORT INFORMATION
  Report Type: Spontaneous
  Country: EU (occurrence: EU)
  Receive Date: 20251006
  Receipt Date: 20251006
  Transmission Date: 20260117
  Serious: Yes (Hospitalization)
  Sender: PFIZER
  Company Number: None

PATIENT
  Age: 45 Year
  Sex: Female
  Weight: 73 kg

DRUGS (2)
  1. RUXIENCE [Suspect]
     Active Substance: RITUXIMAB-PVVR
     Indication: Pemphigus
     Dosage: 1000 MG, SINGLE
     Route: 042
     Dates: start: 20250807, end: 20250807
  2. RUXIENCE [Suspect]
     Active Substance: RITUXIMAB-PVVR
     Dosage: 1000 MG, SINGLE
     Route: 042
     Dates: start: 20250820, end: 20250820

REACTIONS (1)
  - Peripheral artery thrombosis [Recovering/Resolving]

NARRATIVE: CASE EVENT DATE: 20250825
